FAERS Safety Report 25842944 (Version 2)
Quarter: 2025Q3

REPORT INFORMATION
  Report Type: Report from Study
  Country: EG (occurrence: EG)
  Receive Date: 20250924
  Receipt Date: 20250930
  Transmission Date: 20251021
  Serious: Yes (Hospitalization, Other)
  Sender: NOVARTIS
  Company Number: EG-002147023-NVSC2025EG148803

PATIENT
  Age: 42 Year
  Sex: Male
  Weight: 92 kg

DRUGS (11)
  1. LEQVIO [Suspect]
     Active Substance: INCLISIRAN SODIUM
     Indication: Product used for unknown indication
     Route: 058
  2. NOVORAPID [Concomitant]
     Active Substance: INSULIN ASPART
     Indication: Diabetes mellitus
     Dosage: 15 DOSAGE FORM, TID (THREE TIMES DAILY WITH EACH MEAL), START DATE: 3 YEARS AND HALF AGO END DATE: O
     Route: 058
  3. NOVORAPID [Concomitant]
     Active Substance: INSULIN ASPART
     Dosage: 35 DOSAGE FORM (UNITS), TID (THREE TIMES DAILY WITH EACH MEAL),SOLUTION FOR INJECTION,START DATE: ON
     Route: 058
  4. TRESIBA [Concomitant]
     Active Substance: INSULIN DEGLUDEC
     Indication: Diabetes mellitus
     Dosage: 20 DOSAGE FORM (UNIT), QD, SOLUTION FOR INJECTION, STRENGTH 20,START DATE: 3 YEARS AND HALF AGO END
     Route: 058
  5. TRESIBA [Concomitant]
     Active Substance: INSULIN DEGLUDEC
     Dosage: 55 DOSAGE FORM (UNIT), QD, START DATE: ONE MONTH AGO
     Route: 058
  6. DAPAGLIFLOZIN [Concomitant]
     Active Substance: DAPAGLIFLOZIN
     Indication: Diabetes mellitus
     Dosage: UNK, QD, TABLET, START DATE: 3 YEARS AND HALF AGO
     Route: 048
  7. TICAGRELOR [Concomitant]
     Active Substance: TICAGRELOR
     Indication: Anticoagulant therapy
     Dosage: 90 MG, BID, TABLET, STRENGTH 90, START DATE: 3 YEARS AND HALF AGO
     Route: 048
  8. ASPIRIN [Concomitant]
     Active Substance: ASPIRIN
     Indication: Anticoagulant therapy
     Dosage: UNK, QD, TABLET, START DATE: TWO YEARS AND HALF AGO
     Route: 048
  9. EZETIMIBE\ROSUVASTATIN [Concomitant]
     Active Substance: EZETIMIBE\ROSUVASTATIN
     Indication: Hypercholesterolaemia
     Dosage: 40/10 MG, QD, TABLET, STRENGTH 40/10, START DATE: 3 YEARS AND HALF AGO
     Route: 048
  10. FENOFIBRATE [Concomitant]
     Active Substance: FENOFIBRATE
     Indication: Hypercholesterolaemia
     Dosage: UNK, QD, TABLET, START DATE: 3 YEARS AND HALF AGO
     Route: 048
  11. VITAMIN B12 [Concomitant]
     Active Substance: CYANOCOBALAMIN
     Indication: Nutritional supplementation
     Dosage: UNK, QD, TABLET, START DATE: 3 YEARS AND HALF AGO
     Route: 048

REACTIONS (11)
  - Dizziness [Not Recovered/Not Resolved]
  - Loss of consciousness [Recovered/Resolved]
  - Loss of consciousness [Recovered/Resolved]
  - Loss of consciousness [Recovered/Resolved]
  - Diabetes mellitus inadequate control [Not Recovered/Not Resolved]
  - Vision blurred [Not Recovered/Not Resolved]
  - Drug ineffective [Not Recovered/Not Resolved]
  - Bone pain [Not Recovered/Not Resolved]
  - Headache [Not Recovered/Not Resolved]
  - Fatigue [Not Recovered/Not Resolved]
  - Influenza like illness [Recovered/Resolved]

NARRATIVE: CASE EVENT DATE: 20250827
